FAERS Safety Report 25237900 (Version 3)
Quarter: 2025Q3

REPORT INFORMATION
  Report Type: Report from Study
  Country: US (occurrence: US)
  Receive Date: 20250425
  Receipt Date: 20250912
  Transmission Date: 20251020
  Serious: No
  Sender: SUNOVION
  Company Number: US-SUMITOMO PHARMA SWITZERLAND GMBH-2025SPA004036

PATIENT
  Age: 78 Year
  Sex: Male

DRUGS (14)
  1. ORGOVYX [Suspect]
     Active Substance: RELUGOLIX
     Indication: Prostate cancer
     Dosage: 360 MG, SINGLE
     Route: 048
     Dates: start: 20250326, end: 20250326
  2. ORGOVYX [Suspect]
     Active Substance: RELUGOLIX
     Dosage: 120 MG, QD
     Route: 048
     Dates: start: 20250327
  3. ASPIRIN [Concomitant]
     Active Substance: ASPIRIN
  4. CIPRO [Concomitant]
     Active Substance: CIPROFLOXACIN HYDROCHLORIDE
  5. GLIPIZIDE XL [Concomitant]
     Active Substance: GLIPIZIDE
  6. IRBESARTAN [Concomitant]
     Active Substance: IRBESARTAN
  7. LORATADINE [Concomitant]
     Active Substance: LORATADINE
  8. MELOXICAM [Concomitant]
     Active Substance: MELOXICAM
  9. NYSTATIN [Concomitant]
     Active Substance: NYSTATIN
     Route: 061
  10. ROSUVASTATIN CALCIUM [Concomitant]
     Active Substance: ROSUVASTATIN CALCIUM
  11. TADALAFIL [Concomitant]
     Active Substance: TADALAFIL
  12. TRULICITY [Concomitant]
     Active Substance: DULAGLUTIDE
     Route: 058
  13. BICALUTAMIDE [Concomitant]
     Active Substance: BICALUTAMIDE
  14. TAMSULOSIN [Concomitant]
     Active Substance: TAMSULOSIN

REACTIONS (6)
  - Hair texture abnormal [Unknown]
  - Dysuria [Unknown]
  - Rash [Unknown]
  - Libido decreased [Unknown]
  - Fatigue [Unknown]
  - Product dose omission issue [Recovered/Resolved]

NARRATIVE: CASE EVENT DATE: 20250331
